FAERS Safety Report 18406955 (Version 1)
Quarter: 2020Q4

REPORT INFORMATION
  Report Type: Report from Study
  Country: US (occurrence: US)
  Receive Date: 20201021
  Receipt Date: 20201021
  Transmission Date: 20210114
  Serious: Yes (Other)
  Sender: FDA-Public Use
  Company Number: US-JNJFOC-20201021213

PATIENT
  Age: 64 Year
  Sex: Female

DRUGS (1)
  1. SIMPONI [Suspect]
     Active Substance: GOLIMUMAB
     Indication: RHEUMATOID ARTHRITIS
     Dosage: 0.5 ML.
     Route: 058
     Dates: start: 20191224, end: 202010

REACTIONS (2)
  - Rheumatoid arthritis [Unknown]
  - Pneumonia [Unknown]

NARRATIVE: CASE EVENT DATE: 202005
